FAERS Safety Report 16621497 (Version 4)
Quarter: 2020Q3

REPORT INFORMATION
  Report Type: Spontaneous
  Country: ES (occurrence: ES)
  Receive Date: 20190723
  Receipt Date: 20200805
  Transmission Date: 20201102
  Serious: Yes (Other)
  Sender: FDA-Public Use
  Company Number: PHHY2019ES065557

PATIENT
  Age: 7 Year
  Sex: Male

DRUGS (9)
  1. NORMAL SALINE [Concomitant]
     Active Substance: SODIUM CHLORIDE
     Indication: DIURETIC THERAPY
     Dosage: UNK (2.01 PER 1.73 M2/24 H FOR 4 H BEFORE TREATMENT)
     Route: 041
  2. TOPOTECAN HYDROCHLORIDE. [Suspect]
     Active Substance: TOPOTECAN HYDROCHLORIDE
     Indication: NEUROBLASTOMA
     Dosage: 0.7 MG/M2, DAILY (INFUSED OVER 30 MIN BEFORE ADMINISTRATION OF 131I?MIBG)
     Route: 050
  3. TOPOTECAN HYDROCHLORIDE. [Suspect]
     Active Substance: TOPOTECAN HYDROCHLORIDE
     Dosage: 0.7 MG/M2, DAILY (SECOND THERAPEUTIC ADMINISTRATION, ON DAY 15)
     Route: 050
  4. POTASSIUM IODIDE. [Concomitant]
     Active Substance: POTASSIUM IODIDE
     Indication: THYROID FUNCTION TEST NORMAL
  5. IOBENGUANE (131 I) [Suspect]
     Active Substance: IOBENGUANE I-131
     Indication: NEUROBLASTOMA
     Dosage: 9.8 GBQ, (FIRST AND SECOND ADMINISTERED ACTIVITY)
     Route: 050
  6. POTASSIUM IODIDE. [Concomitant]
     Active Substance: POTASSIUM IODIDE
     Indication: PROPHYLAXIS
     Dosage: UNK
     Route: 065
  7. ONDANSETRON HYDROCHLORIDE. [Concomitant]
     Active Substance: ONDANSETRON HYDROCHLORIDE
     Indication: POLYURIA
     Dosage: 20 UG/KG, 2X/DAY
     Route: 065
  8. NORMAL SALINE [Concomitant]
     Active Substance: SODIUM CHLORIDE
     Indication: NEUROBLASTOMA
     Dosage: IOBENGUANE DILUTED WITH NORMAL SODIUM CHLORIDE TO 50ML AND THEN INFUSED AS SOON AS POSSIBLE OVER
     Route: 050
  9. IOBENGUANE (131 I) [Suspect]
     Active Substance: IOBENGUANE I-131
     Indication: NEUROBLASTOMA

REACTIONS (3)
  - Product use in unapproved indication [Unknown]
  - Thrombocytopenia [Unknown]
  - Anaemia [Unknown]
